FAERS Safety Report 9139207 (Version 2)
Quarter: 2013Q2

REPORT INFORMATION
  Report Type: Spontaneous
  Country: US (occurrence: US)
  Receive Date: 20130305
  Receipt Date: 20130408
  Transmission Date: 20140414
  Serious: Yes (Other)
  Sender: FDA-Public Use
  Company Number: US-PFIZER INC-2013073543

PATIENT
  Age: 18 Year
  Sex: Female
  Weight: 63.49 kg

DRUGS (8)
  1. LYRICA [Suspect]
     Indication: COMPLEX REGIONAL PAIN SYNDROME
     Dosage: 25 MG, 2X/DAY
     Dates: start: 201101, end: 2011
  2. LYRICA [Suspect]
     Dosage: 50 MG, 2X/DAY
  3. LYRICA [Suspect]
     Dosage: 75 MG, 2X/DAY
  4. LYRICA [Suspect]
     Dosage: 100 MG, 2X/DAY
  5. LYRICA [Suspect]
     Dosage: UNK, 2X/DAY
  6. CHAPSTICK [Suspect]
     Dosage: UNK
  7. PERCOCET [Concomitant]
     Indication: COMPLEX REGIONAL PAIN SYNDROME
     Dosage: 5/325MG, AS NEEDED
  8. BACLOFEN [Concomitant]
     Indication: COMPLEX REGIONAL PAIN SYNDROME
     Dosage: 10 MG, 2X/DAY

REACTIONS (4)
  - Hypersensitivity [Unknown]
  - Urticaria [Unknown]
  - Dyspnoea [Unknown]
  - Asthma [Unknown]
